FAERS Safety Report 8925162 (Version 3)
Quarter: 2012Q4

REPORT INFORMATION
  Report Type: 
  Country: US (occurrence: US)
  Receive Date: 20121126
  Receipt Date: 20121211
  Transmission Date: 20130627
  Serious: Yes (Hospitalization)
  Sender: FDA-Public Use
  Company Number: US-VERTEX PHARMACEUTICAL INC.-2012-024926

PATIENT
  Age: 63 None
  Sex: Female
  Weight: 75 kg

DRUGS (9)
  1. INCIVEK [Suspect]
     Indication: HEPATITIS C
     Dosage: 750 mg, tid
     Route: 048
     Dates: start: 20121115, end: 20121123
  2. RIBAVIRIN [Suspect]
     Indication: HEPATITIS C
     Dosage: 600mg AM, 400mg PM, qd
     Route: 048
     Dates: start: 20121115, end: 20121123
  3. PEGASYS [Suspect]
     Indication: HEPATITIS C
     Dosage: 180 ?g, qw
     Route: 058
     Dates: start: 20121114, end: 20121123
  4. NORVASC [Concomitant]
     Indication: HYPERTENSION
     Dosage: UNK, qd
     Route: 048
  5. LORAZEPAM [Concomitant]
     Indication: ANXIETY
     Dosage: UNK, qd
     Route: 048
  6. TRAMADOL [Concomitant]
     Indication: PAIN
     Dosage: UNK, prn
     Route: 048
  7. SPIRIVA [Concomitant]
     Indication: ASTHMA
     Dosage: UNK, qd
  8. COMBIVENT [Concomitant]
     Indication: ASTHMA
     Dosage: UNK, prn
  9. ADVAIR [Concomitant]
     Indication: ASTHMA
     Dosage: UNK, bid

REACTIONS (10)
  - Palpitations [Not Recovered/Not Resolved]
  - Dyspnoea [Not Recovered/Not Resolved]
  - Ageusia [Not Recovered/Not Resolved]
  - Rectal haemorrhage [Not Recovered/Not Resolved]
  - Epistaxis [Not Recovered/Not Resolved]
  - Abdominal discomfort [Not Recovered/Not Resolved]
  - Throat irritation [Not Recovered/Not Resolved]
  - Diarrhoea [Not Recovered/Not Resolved]
  - Vomiting [Not Recovered/Not Resolved]
  - Nausea [Not Recovered/Not Resolved]
